FAERS Safety Report 9404369 (Version 1)
Quarter: 2013Q3

REPORT INFORMATION
  Report Type: Spontaneous
  Country: IL (occurrence: IL)
  Receive Date: 20130717
  Receipt Date: 20130717
  Transmission Date: 20140515
  Serious: Yes (Hospitalization)
  Sender: FDA-Public Use
  Company Number: IL-INCYTE CORPORATION-2013IN001502

PATIENT
  Sex: Female

DRUGS (1)
  1. JAKAVI [Suspect]

REACTIONS (2)
  - Splenomegaly [Unknown]
  - Pruritus [Unknown]
